FAERS Safety Report 7841831-5 (Version None)
Quarter: 2011Q4

REPORT INFORMATION
  Report Type: 
  Country: None (occurrence: None)
  Receive Date: 20111020
  Receipt Date: 20111007
  Transmission Date: 20120403
  Serious: Yes (Other)
  Sender: FDA-Public Use
  Company Number: WAES 1110ESP00008

PATIENT
  Age: 64 Year
  Sex: Male

DRUGS (5)
  1. IMIPENEM AND CILASTATIN SODIUM [Suspect]
     Indication: INFECTIOUS PERITONITIS
     Dates: start: 20110401, end: 20110401
  2. IMIPENEM AND CILASTATIN SODIUM [Suspect]
     Indication: SEPTIC SHOCK
     Dates: start: 20110401, end: 20110401
  3. AMIKACIN [Concomitant]
  4. ANIDULAFUNGIN [Concomitant]
  5. LINEZOLID [Concomitant]

REACTIONS (12)
  - RENAL IMPAIRMENT [None]
  - HAEMODYNAMIC INSTABILITY [None]
  - INTESTINAL PERFORATION [None]
  - ANTIBIOTIC RESISTANT STAPHYLOCOCCUS TEST POSITIVE [None]
  - CULTURE URINE POSITIVE [None]
  - INFECTIOUS PERITONITIS [None]
  - BACILLUS TEST POSITIVE [None]
  - PYREXIA [None]
  - RESPIRATORY DISORDER [None]
  - ESCHERICHIA TEST POSITIVE [None]
  - HERNIAL EVENTRATION [None]
  - CANDIDA TEST POSITIVE [None]
